FAERS Safety Report 25279618 (Version 1)
Quarter: 2025Q2

REPORT INFORMATION
  Report Type: Other
  Country: CN (occurrence: CN)
  Receive Date: 20250507
  Receipt Date: 20250507
  Transmission Date: 20250716
  Serious: Yes (Other)
  Sender: BRAINTREE
  Company Number: CN-BRAINTREE LABORATORIES, INC.-2025BTE00272

PATIENT
  Age: 66 Year
  Sex: Female

DRUGS (1)
  1. MAGNESIUM SULFATE\POTASSIUM SULFATE\SODIUM SULFATE [Suspect]
     Active Substance: MAGNESIUM SULFATE\POTASSIUM SULFATE\SODIUM SULFATE
     Indication: Bowel preparation
     Dosage: 2 DOSAGE FORM, 1X/DAY
     Route: 048
     Dates: start: 20250410, end: 20250410

REACTIONS (2)
  - Blood pressure decreased [Recovering/Resolving]
  - Asthenia [Recovering/Resolving]

NARRATIVE: CASE EVENT DATE: 20250410
